FAERS Safety Report 14631274 (Version 3)
Quarter: 2018Q2

REPORT INFORMATION
  Report Type: Report from Study
  Country: JP (occurrence: JP)
  Receive Date: 20180313
  Receipt Date: 20180618
  Transmission Date: 20180711
  Serious: Yes (Other)
  Sender: FDA-Public Use
  Company Number: JP-COLLEGIUM PHARMACEUTICAL, INC.-JP-2018DEP000623

PATIENT
  Age: 68 Year
  Sex: Male
  Weight: 55 kg

DRUGS (18)
  1. OXINORM                            /00045603/ [Concomitant]
     Active Substance: OXYCODONE HYDROCHLORIDE
     Indication: CANCER PAIN
     Dosage: UNK
     Dates: start: 20170920, end: 20170922
  2. CELECOX [Concomitant]
     Active Substance: CELECOXIB
     Indication: CANCER PAIN
     Dosage: UNK
     Dates: start: 20170914
  3. TAPENTADOL HYDROCHLORIDE [Suspect]
     Active Substance: TAPENTADOL HYDROCHLORIDE
     Dosage: 75 MG, BID
     Route: 048
     Dates: start: 20170928, end: 20171103
  4. BAYASPIRIN [Concomitant]
     Active Substance: ASPIRIN
     Indication: CEREBRAL INFARCTION
     Dosage: UNK
     Dates: start: 20170920
  5. DEBERZA [Concomitant]
     Active Substance: TOFOGLIFLOZIN
     Indication: TYPE 2 DIABETES MELLITUS
     Dosage: UNK
     Dates: start: 20171031
  6. OXINORM                            /00045603/ [Concomitant]
     Active Substance: OXYCODONE HYDROCHLORIDE
     Dosage: UNK
     Dates: start: 20170925, end: 20170926
  7. OXINORM                            /00045603/ [Concomitant]
     Active Substance: OXYCODONE HYDROCHLORIDE
     Dosage: UNK
     Dates: start: 20170929, end: 20170929
  8. BICALUTAMIDE. [Concomitant]
     Active Substance: BICALUTAMIDE
     Indication: PROSTATE CANCER
     Dosage: UNK
     Dates: start: 20170915
  9. GONAX [Concomitant]
     Active Substance: DEGARELIX
     Indication: PROSTATE CANCER
     Dosage: UNK
     Dates: start: 20170926, end: 20171024
  10. PLETAAL [Concomitant]
     Active Substance: CILOSTAZOL
     Indication: CEREBRAL INFARCTION
     Dosage: UNK
     Dates: start: 20170920
  11. LEVOFLOXACIN HEMIHYDRATE [Concomitant]
     Active Substance: LEVOFLOXACIN
     Indication: DERMAL CYST
     Dosage: UNK
     Dates: start: 20170921, end: 20170925
  12. OXINORM                            /00045603/ [Concomitant]
     Active Substance: OXYCODONE HYDROCHLORIDE
     Dosage: UNK
     Dates: start: 20170928, end: 20170928
  13. CALONAL [Concomitant]
     Active Substance: ACETAMINOPHEN
     Indication: CANCER PAIN
     Dosage: UNK
     Dates: start: 20170914, end: 20171003
  14. TAPENTADOL HYDROCHLORIDE [Suspect]
     Active Substance: TAPENTADOL HYDROCHLORIDE
     Indication: CANCER PAIN
     Dosage: 50 MG, BID
     Route: 048
     Dates: start: 20170921, end: 20170927
  15. OXINORM                            /00045603/ [Concomitant]
     Active Substance: OXYCODONE HYDROCHLORIDE
     Dosage: UNK
     Dates: start: 20171002, end: 20171002
  16. OXINORM                            /00045603/ [Concomitant]
     Active Substance: OXYCODONE HYDROCHLORIDE
     Dosage: UNK
     Dates: start: 20171003, end: 20171004
  17. CALONAL [Concomitant]
     Active Substance: ACETAMINOPHEN
     Dosage: UNK
     Dates: start: 20170919, end: 20171018
  18. CALONAL [Concomitant]
     Active Substance: ACETAMINOPHEN
     Dosage: UNK
     Dates: start: 20170914, end: 20170914

REACTIONS (3)
  - Metastases to bone [Recovered/Resolved]
  - Constipation [Recovered/Resolved]
  - Pain [Recovered/Resolved]

NARRATIVE: CASE EVENT DATE: 20171001
